FAERS Safety Report 10673589 (Version 9)
Quarter: 2018Q3

REPORT INFORMATION
  Report Type: Spontaneous
  Country: GB (occurrence: GB)
  Receive Date: 20141224
  Receipt Date: 20180827
  Transmission Date: 20181010
  Serious: Yes (Death, Congenital Anomaly, Other)
  Sender: FDA-Public Use
  Company Number: GB-JNJFOC-20141210094

PATIENT
  Sex: Female
  Weight: .26 kg

DRUGS (13)
  1. LOPINAVIR W/RITONAVIR [Suspect]
     Active Substance: LOPINAVIR\RITONAVIR
     Indication: HIV INFECTION
     Route: 064
     Dates: start: 200809, end: 201204
  2. DARUNAVIR [Suspect]
     Active Substance: DARUNAVIR
     Indication: HIV INFECTION
     Route: 064
     Dates: start: 201407, end: 20141201
  3. MIRTAZAPINE. [Suspect]
     Active Substance: MIRTAZAPINE
     Indication: DEPRESSION
     Dosage: MOTHER DOSING
     Route: 064
     Dates: start: 201406
  4. TRUVADA [Suspect]
     Active Substance: EMTRICITABINE\TENOFOVIR DISOPROXIL FUMARATE
     Indication: HIV INFECTION
     Route: 064
     Dates: start: 201407, end: 20141201
  5. NORVIR [Suspect]
     Active Substance: RITONAVIR
     Indication: HIV INFECTION
     Dosage: MOTHER DOSING
     Route: 064
     Dates: start: 20080117
  6. DARUNAVIR [Suspect]
     Active Substance: DARUNAVIR
     Indication: HIV INFECTION
     Dosage: MOTHER DOSING
     Route: 064
     Dates: start: 20120401
  7. CYCLIZINE [Suspect]
     Active Substance: CYCLIZINE
     Indication: VOMITING
     Dosage: MOTHER DOSING
     Route: 064
     Dates: start: 20140918, end: 20140922
  8. CYCLIZINE [Suspect]
     Active Substance: CYCLIZINE
     Indication: HERPES VIRUS INFECTION
     Dosage: MOTHER DOSING
     Route: 064
     Dates: start: 20140918, end: 20140922
  9. VALACYCLOVIR [Suspect]
     Active Substance: VALACYCLOVIR HYDROCHLORIDE
     Indication: HERPES VIRUS INFECTION
     Dosage: MOTHER DOSING
     Route: 064
     Dates: start: 20140918, end: 20141201
  10. NORVIR [Suspect]
     Active Substance: RITONAVIR
     Indication: HIV INFECTION
     Route: 064
     Dates: start: 201407, end: 20141201
  11. NORVIR [Suspect]
     Active Substance: RITONAVIR
     Indication: HIV INFECTION
     Dosage: 200/50
     Route: 064
     Dates: start: 201204
  12. MIRTAZAPINE. [Suspect]
     Active Substance: MIRTAZAPINE
     Indication: DEPRESSION
     Route: 064
     Dates: start: 201407, end: 20141201
  13. TRUVADA [Suspect]
     Active Substance: EMTRICITABINE\TENOFOVIR DISOPROXIL FUMARATE
     Indication: HIV INFECTION
     Dosage: MOTHER DOSING
     Route: 064
     Dates: start: 20080117

REACTIONS (5)
  - Foetal exposure during pregnancy [Recovered/Resolved]
  - Foetal death [Fatal]
  - Cerebral ventricle dilatation [Fatal]
  - Skull malformation [Fatal]
  - Spina bifida [Fatal]

NARRATIVE: CASE EVENT DATE: 20141126
